FAERS Safety Report 7494867-0 (Version None)
Quarter: 2011Q2

REPORT INFORMATION
  Report Type: 
  Country: None (occurrence: None)
  Receive Date: 20110520
  Receipt Date: 20110516
  Transmission Date: 20111010
  Serious: Yes (Death)
  Sender: FDA-Public Use
  Company Number: US-ASTRAZENECA-2011SE29505

PATIENT
  Age: 80 Year
  Sex: Male

DRUGS (1)
  1. SYMBICORT [Suspect]
     Route: 055

REACTIONS (4)
  - GENERAL PHYSICAL HEALTH DETERIORATION [None]
  - RENAL DISORDER [None]
  - DIABETES MELLITUS [None]
  - CARDIAC FAILURE CONGESTIVE [None]
